FAERS Safety Report 18346520 (Version 1)
Quarter: 2020Q4

REPORT INFORMATION
  Report Type: Other
  Country: US (occurrence: US)
  Receive Date: 20201006
  Receipt Date: 20201006
  Transmission Date: 20210114
  Serious: Yes (Hospitalization, Other)
  Sender: FDA-Public Use
  Company Number: US-ROCHE-2594025

PATIENT
  Sex: Male

DRUGS (2)
  1. ESBRIET [Suspect]
     Active Substance: PIRFENIDONE
     Indication: IDIOPATHIC PULMONARY FIBROSIS
     Route: 048
     Dates: start: 20200423, end: 20200423
  2. ESBRIET [Suspect]
     Active Substance: PIRFENIDONE
     Dosage: 1 PILL 3 TIMES PER DAY
     Route: 048
     Dates: start: 20200512

REACTIONS (4)
  - Pneumonia [Not Recovered/Not Resolved]
  - Liver function test increased [Unknown]
  - Cholecystitis [Unknown]
  - Oxygen saturation decreased [Unknown]
